FAERS Safety Report 23352133 (Version 3)
Quarter: 2024Q2

REPORT INFORMATION
  Report Type: Spontaneous
  Country: US (occurrence: US)
  Receive Date: 20231229
  Receipt Date: 20240422
  Transmission Date: 20240716
  Serious: No
  Sender: FDA-Public Use
  Company Number: US-SA-SAC20231221000229

PATIENT
  Age: 52 Year
  Sex: Female

DRUGS (1)
  1. DUPIXENT [Suspect]
     Active Substance: DUPILUMAB
     Indication: Dermatitis atopic
     Dosage: 300 MG, QOW
     Route: 058

REACTIONS (10)
  - Muscle spasms [Unknown]
  - Dry skin [Unknown]
  - Pruritus [Unknown]
  - Skin exfoliation [Unknown]
  - Arthralgia [Recovered/Resolved]
  - Injection site pruritus [Recovered/Resolved]
  - Stress [Unknown]
  - Injection site pain [Unknown]
  - Dermatitis atopic [Unknown]
  - Device issue [Unknown]

NARRATIVE: CASE EVENT DATE: 20240301
